FAERS Safety Report 17538670 (Version 1)
Quarter: 2020Q1

REPORT INFORMATION
  Report Type: Spontaneous
  Country: NL (occurrence: NL)
  Receive Date: 20200313
  Receipt Date: 20200313
  Transmission Date: 20200409
  Serious: Yes (Hospitalization, Other)
  Sender: FDA-Public Use
  Company Number: NL-BAUSCH-BL-2020-007458

PATIENT
  Age: 66 Year
  Sex: Female

DRUGS (16)
  1. PANTOPRAZOL (PANTOPRAZOLE) [Suspect]
     Active Substance: PANTOPRAZOLE
     Indication: GASTROINTESTINAL DISORDER PROPHYLAXIS
     Route: 065
     Dates: start: 201902
  2. METOPROLOL TARTRATE. [Concomitant]
     Active Substance: METOPROLOL TARTRATE
     Indication: PRODUCT USED FOR UNKNOWN INDICATION
  3. METOPROLOL TARTRATE. [Concomitant]
     Active Substance: METOPROLOL TARTRATE
     Dates: start: 20200121
  4. TAMBOCOR [Concomitant]
     Active Substance: FLECAINIDE ACETATE
  5. METOPROLOL. [Suspect]
     Active Substance: METOPROLOL
     Indication: PRODUCT USED FOR UNKNOWN INDICATION
     Route: 065
  6. IRRIBOW [Concomitant]
     Active Substance: RAMOSETRON HYDROCHLORIDE
     Indication: IRRITABLE BOWEL SYNDROME
     Dosage: 2.5 MG, QD
  7. METOPROLOL TARTRATE. [Concomitant]
     Active Substance: METOPROLOL TARTRATE
  8. ADALATE [Concomitant]
     Active Substance: NIFEDIPINE
     Indication: PRODUCT USED FOR UNKNOWN INDICATION
  9. BETALOC [Concomitant]
     Active Substance: METOPROLOL TARTRATE
     Indication: PRODUCT USED FOR UNKNOWN INDICATION
  10. TAMBOCOR [Concomitant]
     Active Substance: FLECAINIDE ACETATE
     Indication: ATRIAL FIBRILLATION
  11. TAMBOCOR [Concomitant]
     Active Substance: FLECAINIDE ACETATE
     Dates: start: 2014
  12. METOPROLOL TARTRATE. [Concomitant]
     Active Substance: METOPROLOL TARTRATE
  13. NIFEDIPINE. [Suspect]
     Active Substance: NIFEDIPINE
     Indication: PRODUCT USED FOR UNKNOWN INDICATION
     Route: 065
  14. MUCOSTA [Concomitant]
     Active Substance: REBAMIPIDE
     Indication: PRODUCT USED FOR UNKNOWN INDICATION
     Dosage: 300 MG IN ONE DAY (100 MG (TID))
  15. TAMBOCOR [Concomitant]
     Active Substance: FLECAINIDE ACETATE
  16. XARELTO [Suspect]
     Active Substance: RIVAROXABAN
     Indication: ATRIAL FIBRILLATION
     Dosage: 20 MG, QD
     Route: 065
     Dates: start: 201407

REACTIONS (15)
  - Paraesthesia [Recovered/Resolved]
  - Headache [Unknown]
  - Atrial fibrillation [Recovered/Resolved]
  - Atrial fibrillation [Unknown]
  - Gastric polyps [Unknown]
  - Palpitations [Recovered/Resolved]
  - Paraesthesia oral [Unknown]
  - Abdominal pain upper [Unknown]
  - Heart valve incompetence [Unknown]
  - Right atrial enlargement [Unknown]
  - Arrhythmia [Unknown]
  - Blood pressure fluctuation [Recovered/Resolved]
  - Chest discomfort [Recovered/Resolved]
  - Gastrointestinal disorder [Recovered/Resolved]
  - Malaise [Recovered/Resolved]

NARRATIVE: CASE EVENT DATE: 201408
